FAERS Safety Report 7671264-6 (Version None)
Quarter: 2011Q3

REPORT INFORMATION
  Report Type: 
  Country: None (occurrence: None)
  Receive Date: 20110809
  Receipt Date: 20110802
  Transmission Date: 20111222
  Serious: Yes (Hospitalization)
  Sender: FDA-Public Use
  Company Number: US-BRACCO-006349

PATIENT
  Age: 55 Year
  Sex: Male

DRUGS (12)
  1. SIMVASTATIN [Concomitant]
  2. ALBUTEROL SULFATE AUTOHALER [Concomitant]
  3. VENLAFAXINE [Concomitant]
  4. MULTIHANCE [Suspect]
     Indication: NUCLEAR MAGNETIC RESONANCE IMAGING BRAIN
     Route: 042
     Dates: start: 20110614, end: 20110614
  5. METFORMIN HCL [Concomitant]
  6. ACETAMINOPHEN [Concomitant]
  7. MULTIHANCE [Suspect]
     Indication: HAEMORRHAGE
     Route: 042
     Dates: start: 20110614, end: 20110614
  8. MULTI-VITAMINS [Concomitant]
  9. GLIPIZIDE [Concomitant]
  10. MULTIHANCE [Suspect]
     Indication: HEADACHE
     Route: 042
     Dates: start: 20110614, end: 20110614
  11. TRAZODONE HCL [Concomitant]
  12. MULTIHANCE [Suspect]
     Indication: SYNCOPE
     Route: 042
     Dates: start: 20110614, end: 20110614

REACTIONS (1)
  - ANAPHYLACTIC REACTION [None]
